FAERS Safety Report 15389627 (Version 1)
Quarter: 2018Q3

REPORT INFORMATION
  Report Type: Spontaneous
  Country: GB (occurrence: GB)
  Receive Date: 20180917
  Receipt Date: 20180917
  Transmission Date: 20181010
  Serious: Yes (Other)
  Sender: FDA-Public Use
  Company Number: GB-TEVA-2018-GB-955054

PATIENT
  Age: 25 Year
  Sex: Male
  Weight: 80 kg

DRUGS (1)
  1. ESCITALOPRAM OXALATE. [Suspect]
     Active Substance: ESCITALOPRAM OXALATE
     Dosage: 25 MG
     Route: 048
     Dates: start: 20150304, end: 20150404

REACTIONS (3)
  - Erectile dysfunction [Recovering/Resolving]
  - Sexual dysfunction [Recovering/Resolving]
  - Libido decreased [Recovering/Resolving]

NARRATIVE: CASE EVENT DATE: 20150306
